FAERS Safety Report 12701953 (Version 1)
Quarter: 2016Q3

REPORT INFORMATION
  Report Type: Spontaneous
  Country: US (occurrence: US)
  Receive Date: 20160831
  Receipt Date: 20160831
  Transmission Date: 20161109
  Serious: No
  Sender: FDA-Public Use
  Company Number: US-JAZZ-2016-US-007457

PATIENT
  Age: 41 Year
  Sex: Female

DRUGS (22)
  1. XYREM [Suspect]
     Active Substance: SODIUM OXYBATE
     Indication: NARCOLEPSY
     Dosage: 2.25 G, BID
     Route: 048
     Dates: start: 200305, end: 200307
  2. XYREM [Suspect]
     Active Substance: SODIUM OXYBATE
     Indication: CATAPLEXY
     Dosage: DOSE ADJUSTMENT
     Route: 048
  3. DOXYCYCLINE. [Concomitant]
     Active Substance: DOXYCYCLINE
  4. XYREM [Suspect]
     Active Substance: SODIUM OXYBATE
     Dosage: 4.5 G, BID
     Route: 048
     Dates: start: 200705, end: 2007
  5. ZONEGRAN [Concomitant]
     Active Substance: ZONISAMIDE
  6. HYDROCODONE [Concomitant]
     Active Substance: HYDROCODONE
  7. LEVAQUIN [Concomitant]
     Active Substance: LEVOFLOXACIN
  8. NADOLOL. [Concomitant]
     Active Substance: NADOLOL
  9. XYREM [Suspect]
     Active Substance: SODIUM OXYBATE
     Dosage: DOSE ADJUSTMENT
     Route: 048
  10. OXCARBAZEPINE. [Concomitant]
     Active Substance: OXCARBAZEPINE
  11. RISPERDAL [Concomitant]
     Active Substance: RISPERIDONE
  12. BUSPIRONE HCL [Concomitant]
     Active Substance: BUSPIRONE HYDROCHLORIDE
  13. TEGRETOL [Concomitant]
     Active Substance: CARBAMAZEPINE
  14. RITALIN [Concomitant]
     Active Substance: METHYLPHENIDATE HYDROCHLORIDE
  15. SYNTHROID [Concomitant]
     Active Substance: LEVOTHYROXINE SODIUM
  16. PAROXETINE. [Concomitant]
     Active Substance: PAROXETINE
  17. PRAVASTATIN. [Concomitant]
     Active Substance: PRAVASTATIN
  18. FOLIC ACID. [Concomitant]
     Active Substance: FOLIC ACID
  19. XYREM [Suspect]
     Active Substance: SODIUM OXYBATE
     Dosage: 2.25 G, BID
     Route: 048
     Dates: start: 201001, end: 201001
  20. XYREM [Suspect]
     Active Substance: SODIUM OXYBATE
     Dosage: 3.75 G, BID
     Route: 048
     Dates: start: 201601
  21. IBUPROFEN. [Concomitant]
     Active Substance: IBUPROFEN
  22. TRILEPTAL [Concomitant]
     Active Substance: OXCARBAZEPINE

REACTIONS (15)
  - Cough [Unknown]
  - Chest discomfort [Unknown]
  - Delusion [Unknown]
  - Liver disorder [Unknown]
  - Intentional product use issue [Unknown]
  - Nasopharyngitis [Unknown]
  - Malaise [Unknown]
  - Renal disorder [Unknown]
  - Hypertension [Unknown]
  - Dyspnoea [Recovering/Resolving]
  - Unevaluable event [Not Recovered/Not Resolved]
  - Stress [Unknown]
  - Therapeutic response decreased [Unknown]
  - Accidental exposure to product [Unknown]
  - Asthma [Unknown]

NARRATIVE: CASE EVENT DATE: 201604
